FAERS Safety Report 7063826-4 (Version None)
Quarter: 2010Q4

REPORT INFORMATION
  Report Type: 
  Country: None (occurrence: None)
  Receive Date: 20101026
  Receipt Date: 20100908
  Transmission Date: 20110411
  Serious: No
  Sender: FDA-Public Use
  Company Number: US-ABBOTT-10P-163-0668993-00

PATIENT
  Sex: Female

DRUGS (11)
  1. LUPRON DEPOT [Suspect]
     Indication: PRODUCT USED FOR UNKNOWN INDICATION
     Dosage: TO THE STOMACH
     Dates: start: 20100627, end: 20100706
  2. LUPRON DEPOT [Suspect]
     Dates: start: 20100706
  3. BIRTH CONTROL PILL [Concomitant]
     Indication: PRODUCT USED FOR UNKNOWN INDICATION
  4. ESTROGEN [Concomitant]
     Indication: PRODUCT USED FOR UNKNOWN INDICATION
     Dosage: PATCHES
  5. ESTROGEN [Concomitant]
     Dosage: 3 PATCHES
     Dates: start: 20100714
  6. ASPIRIN [Concomitant]
     Indication: PRODUCT USED FOR UNKNOWN INDICATION
     Dosage: IN THE MORNING
  7. ACETAMINOPHEN [Concomitant]
     Indication: PRODUCT USED FOR UNKNOWN INDICATION
  8. PRENATAL [Concomitant]
     Indication: PRODUCT USED FOR UNKNOWN INDICATION
     Dosage: IN THE MORNING
  9. MEDROL [Concomitant]
     Indication: PRODUCT USED FOR UNKNOWN INDICATION
     Dosage: 1 IN MORNING, 1 AT NIGHT
  10. VIVELLE [Concomitant]
     Indication: PRODUCT USED FOR UNKNOWN INDICATION
     Dosage: 4 PATCHES IN THE MORNING
  11. PROGESTERONE [Concomitant]
     Indication: PRODUCT USED FOR UNKNOWN INDICATION
     Dosage: TO THE BUTT AT NIGHT
     Route: 050

REACTIONS (18)
  - ABDOMINAL DISCOMFORT [None]
  - ABDOMINAL PAIN [None]
  - AGITATION [None]
  - CRYING [None]
  - DIZZINESS [None]
  - EMOTIONAL DISORDER [None]
  - EXCORIATION [None]
  - FATIGUE [None]
  - FEAR [None]
  - HEADACHE [None]
  - HUNGER [None]
  - IRRITABILITY [None]
  - MALAISE [None]
  - PREGNANCY [None]
  - STAPHYLOCOCCAL INFECTION [None]
  - TINEA INFECTION [None]
  - UNEVALUABLE EVENT [None]
  - WEIGHT INCREASED [None]
